FAERS Safety Report 5769069-6 (Version None)
Quarter: 2008Q2

REPORT INFORMATION
  Report Type: 
  Country: None (occurrence: None)
  Receive Date: 20080612
  Receipt Date: 20080320
  Transmission Date: 20081010
  Serious: No
  Sender: FDA-Public Use
  Company Number: US-ABBOTT-08P-163-0443541-00

PATIENT
  Sex: Male
  Weight: 104.42 kg

DRUGS (4)
  1. HUMIRA [Suspect]
     Indication: RHEUMATOID ARTHRITIS
     Route: 058
     Dates: start: 19980701, end: 19980801
  2. SALAZINE [Concomitant]
     Indication: BIPOLAR DISORDER
     Route: 048
     Dates: start: 19950101
  3. LITHIUM CARBONATE [Concomitant]
     Indication: BIPOLAR DISORDER
     Route: 048
     Dates: start: 19950101
  4. BENZTROPINE MESYLATE [Concomitant]
     Indication: BIPOLAR DISORDER
     Route: 048
     Dates: start: 19950101

REACTIONS (1)
  - FURUNCLE [None]
